FAERS Safety Report 21594522 (Version 2)
Quarter: 2022Q4

REPORT INFORMATION
  Report Type: Report from Study
  Country: US (occurrence: US)
  Receive Date: 20221115
  Receipt Date: 20221124
  Transmission Date: 20230113
  Serious: Yes (Hospitalization, Other)
  Sender: FDA-Public Use
  Company Number: US-BoehringerIngelheim-2021-BI-085081

PATIENT
  Age: 58 Year
  Sex: Female
  Weight: 77.1 kg

DRUGS (18)
  1. OFEV [Suspect]
     Active Substance: NINTEDANIB
     Indication: Idiopathic pulmonary fibrosis
     Route: 048
     Dates: start: 20210210, end: 20221018
  2. OFEV [Suspect]
     Active Substance: NINTEDANIB
     Indication: Interstitial lung disease
     Route: 048
     Dates: start: 20200210, end: 20210629
  3. OFEV [Suspect]
     Active Substance: NINTEDANIB
     Dosage: 100 MG IN AM AND 150 MG IN PM
     Route: 048
  4. OFEV [Suspect]
     Active Substance: NINTEDANIB
     Route: 048
  5. TYVASO [Suspect]
     Active Substance: TREPROSTINIL
     Indication: Pulmonary arterial hypertension
     Dosage: 60-120 UG, , INHALATION
     Route: 055
     Dates: start: 20200109
  6. TYVASO [Suspect]
     Active Substance: TREPROSTINIL
     Indication: Interstitial lung disease
     Dosage: 60-120 UG, , INHALATION, 0.6 MG/ML
     Route: 055
     Dates: start: 20200404
  7. TYVASO [Suspect]
     Active Substance: TREPROSTINIL
     Dosage: 66-72 ?G (11-12 BREATHS), INHALATION GAS
     Route: 055
     Dates: start: 20200804
  8. TYVASO [Suspect]
     Active Substance: TREPROSTINIL
     Dosage: 18-54 UG, , INHALATION
     Route: 055
  9. TYVASO [Suspect]
     Active Substance: TREPROSTINIL
     Dosage: 66-72 ?G (11-12 BREATHS),  VIA INHALATION
     Route: 055
  10. TYVASO [Suspect]
     Active Substance: TREPROSTINIL
     Route: 055
  11. DIGOXIN [Suspect]
     Active Substance: DIGOXIN
     Indication: Chest pain
  12. DIGOXIN [Suspect]
     Active Substance: DIGOXIN
     Indication: Cardiac flutter
  13. COLCHICINE [Suspect]
     Active Substance: COLCHICINE
     Indication: Product used for unknown indication
  14. PREDNISONE [Suspect]
     Active Substance: PREDNISONE
     Indication: Product used for unknown indication
  15. IMODIUM [Suspect]
     Active Substance: LOPERAMIDE HYDROCHLORIDE
     Indication: Product used for unknown indication
  16. DILTIAZEM [Concomitant]
     Active Substance: DILTIAZEM
     Indication: Product used for unknown indication
  17. TADALAFIL [Concomitant]
     Active Substance: TADALAFIL
     Indication: Product used for unknown indication
  18. ELIQUISI [Concomitant]
     Indication: Product used for unknown indication

REACTIONS (53)
  - Gastric haemorrhage [Unknown]
  - Cardiac flutter [Unknown]
  - Toxicity to various agents [Unknown]
  - Heart rate increased [Unknown]
  - Chest pain [Unknown]
  - Dyspnoea [Unknown]
  - Abdominal pain upper [Recovering/Resolving]
  - Gastrooesophageal reflux disease [Not Recovered/Not Resolved]
  - Gastrointestinal disorder [Not Recovered/Not Resolved]
  - Blood pressure decreased [Unknown]
  - Alanine aminotransferase increased [Not Recovered/Not Resolved]
  - Abdominal pain upper [Recovered/Resolved]
  - Flatulence [Unknown]
  - Sinusitis [Unknown]
  - Dizziness [Unknown]
  - Paranasal sinus hypersecretion [Unknown]
  - Skin irritation [Unknown]
  - Vulvovaginal pruritus [Unknown]
  - Middle ear effusion [Unknown]
  - Upper-airway cough syndrome [Unknown]
  - Cough [Unknown]
  - Sinus headache [Unknown]
  - Feeling abnormal [Unknown]
  - Seasonal allergy [Unknown]
  - Nasal congestion [Unknown]
  - Sneezing [Unknown]
  - Oral herpes [Unknown]
  - Stomatitis [Unknown]
  - Gout [Unknown]
  - Productive cough [Unknown]
  - Fluid retention [Unknown]
  - Gastric disorder [Unknown]
  - Nasal congestion [Unknown]
  - Abdominal discomfort [Unknown]
  - Dyspepsia [Recovering/Resolving]
  - Irritable bowel syndrome [Unknown]
  - Muscle spasms [Unknown]
  - Headache [Unknown]
  - Paranasal sinus discomfort [Unknown]
  - Nausea [Unknown]
  - Gastrointestinal disorder [Unknown]
  - Abdominal discomfort [Unknown]
  - Dyspepsia [Unknown]
  - Myalgia [Unknown]
  - Diarrhoea [Not Recovered/Not Resolved]
  - Off label use [Unknown]
  - Oropharyngeal discomfort [Unknown]
  - Infection [Unknown]
  - Dry mouth [Unknown]
  - Respiratory tract infection [Recovering/Resolving]
  - Abdominal pain upper [Not Recovered/Not Resolved]
  - Constipation [Unknown]
  - Drug intolerance [Unknown]

NARRATIVE: CASE EVENT DATE: 20200201
